FAERS Safety Report 6683819-6 (Version None)
Quarter: 2010Q2

REPORT INFORMATION
  Report Type: 
  Country: None (occurrence: None)
  Receive Date: 20100416
  Receipt Date: 20090421
  Transmission Date: 20101027
  Serious: No
  Sender: FDA-Public Use
  Company Number: A0826019A

PATIENT
  Age: 71 Year
  Sex: Female

DRUGS (1)
  1. VUSION [Suspect]
     Indication: RASH
     Route: 061
     Dates: start: 20090420, end: 20090420

REACTIONS (1)
  - RASH [None]
